FAERS Safety Report 19036313 (Version 3)
Quarter: 2022Q3

REPORT INFORMATION
  Report Type: Report from Study
  Country: JP (occurrence: JP)
  Receive Date: 20210322
  Receipt Date: 20220728
  Transmission Date: 20221027
  Serious: Yes (Hospitalization, Other)
  Sender: FDA-Public Use
  Company Number: JP-ALXN-A202005207AA

PATIENT
  Age: 55 Year
  Sex: Female
  Weight: 59 kg

DRUGS (31)
  1. SOLIRIS [Suspect]
     Active Substance: ECULIZUMAB
     Dosage: 1200 MG, Q2W
     Route: 042
     Dates: start: 20200324
  2. SOLIRIS [Suspect]
     Active Substance: ECULIZUMAB
     Indication: Neuromyelitis optica spectrum disorder
     Dosage: 900 MG, QW
     Route: 042
     Dates: start: 20200225, end: 20200317
  3. AMLODIPINE [Concomitant]
     Active Substance: AMLODIPINE BESYLATE
     Indication: Hypertension
     Dosage: 5 MG, QD
     Route: 048
     Dates: start: 20190719, end: 20200310
  4. CALONAL [Concomitant]
     Active Substance: ACETAMINOPHEN
     Indication: Multiple sclerosis
     Dosage: 200 MG, PRN
     Route: 048
     Dates: start: 20190911
  5. CEPHARANTHINE [Concomitant]
     Active Substance: CEPHARANTHINE
     Indication: Prophylaxis
     Dosage: 6 MG, TID
     Route: 048
     Dates: start: 20200507, end: 20210209
  6. ELDECALCITOL [Concomitant]
     Active Substance: ELDECALCITOL
     Indication: Osteoporosis
     Dosage: 0.75 ?G, QD
     Route: 048
     Dates: start: 20191002, end: 20220223
  7. ELDECALCITOL [Concomitant]
     Active Substance: ELDECALCITOL
     Dosage: 0.75 ?G, QD
     Route: 048
     Dates: start: 20220224
  8. ESZOPICLONE [Concomitant]
     Active Substance: ESZOPICLONE
     Indication: Insomnia
     Dosage: 1 MG, QD
     Route: 048
     Dates: start: 20210908, end: 20211214
  9. ESZOPICLONE [Concomitant]
     Active Substance: ESZOPICLONE
     Dosage: 1 MG, QD
     Route: 048
     Dates: start: 20211215
  10. FAMOTIDINE [Concomitant]
     Active Substance: FAMOTIDINE
     Indication: Abdominal pain upper
     Dosage: 20 MG, QD
     Route: 048
     Dates: start: 20211209
  11. FAMOTIDINE [Concomitant]
     Active Substance: FAMOTIDINE
     Indication: Prophylaxis
     Dosage: 40 MG, BID
     Route: 048
     Dates: start: 20190801, end: 20200716
  12. FORTEO [Concomitant]
     Active Substance: TERIPARATIDE
     Indication: Osteoporosis
     Dosage: 20 ?G, QD
     Route: 058
     Dates: start: 20191002, end: 20210915
  13. GLYCYRON                           /00466401/ [Concomitant]
     Indication: Prophylaxis
     Dosage: 6 DF, TID
     Route: 048
     Dates: start: 20200507, end: 20210209
  14. LOSARTAN POTASSIUM [Concomitant]
     Active Substance: LOSARTAN POTASSIUM
     Indication: Hypertension
     Dosage: 50 MG, QD
     Route: 048
     Dates: start: 20210922
  15. LOXONIN PAP [Concomitant]
     Indication: Back pain
     Dosage: 100 MG, QD
     Route: 061
     Dates: start: 20211209
  16. MAGNESIUM OXIDE [Concomitant]
     Active Substance: MAGNESIUM OXIDE
     Indication: Multiple sclerosis
     Dosage: 1000 MG, BID
     Route: 048
  17. MIYA-BM [Concomitant]
     Active Substance: CLOSTRIDIUM BUTYRICUM SPORES STRAIN M-55
     Indication: Multiple sclerosis
     Dosage: 3 DF, TID
     Route: 048
     Dates: start: 20191204
  18. SODIUM PICOSULFATE [Concomitant]
     Active Substance: SODIUM PICOSULFATE
     Indication: Multiple sclerosis
     Dosage: 5 MG, QD
     Route: 048
     Dates: start: 20190801, end: 20210209
  19. SODIUM PICOSULFATE [Concomitant]
     Active Substance: SODIUM PICOSULFATE
     Dosage: PROPER QUANTITY, AT THE TIME OF CONSTIPATION
     Dates: start: 20210210
  20. DENOSUMAB [Concomitant]
     Active Substance: DENOSUMAB
     Indication: Osteoporosis
     Dosage: 60 MG, QD
     Route: 058
     Dates: start: 20211025, end: 20211025
  21. PREDONINE [Concomitant]
     Active Substance: PREDNISOLONE
     Indication: Multiple sclerosis
     Dosage: 10 MG, QD
     Route: 048
     Dates: end: 20201021
  22. PREDONINE [Concomitant]
     Active Substance: PREDNISOLONE
     Dosage: 15 MG, QD
     Route: 048
     Dates: start: 20220120
  23. PREDONINE [Concomitant]
     Active Substance: PREDNISOLONE
     Dosage: 20 MG, QD
     Route: 048
     Dates: start: 20211206, end: 20220119
  24. PREDONINE [Concomitant]
     Active Substance: PREDNISOLONE
     Dosage: 5 MG, QD
     Route: 048
     Dates: start: 20201022, end: 20211205
  25. PREDONINE [Concomitant]
     Active Substance: PREDNISOLONE
     Indication: Product used for unknown indication
     Dosage: UNK MG, UNK
     Route: 048
  26. ROZEREM [Concomitant]
     Active Substance: RAMELTEON
     Indication: Multiple sclerosis
     Dosage: 8 MG, QD
     Route: 048
     Dates: start: 20190620, end: 20210209
  27. TELMISARTAN [Concomitant]
     Active Substance: TELMISARTAN
     Indication: Hypertension
     Dosage: 40 MG, QD
     Route: 048
     Dates: start: 20191224, end: 20210921
  28. TRICHLORMETHIAZIDE [Concomitant]
     Active Substance: TRICHLORMETHIAZIDE
     Indication: Hypertension
     Dosage: 1 MG, QD
     Route: 048
     Dates: start: 20190801
  29. XYZAL [Concomitant]
     Active Substance: LEVOCETIRIZINE DIHYDROCHLORIDE
     Indication: Prophylaxis
     Dosage: 5 MG, QD
     Route: 048
     Dates: start: 20190205, end: 20200915
  30. YOKUKANSANKACHIMPIHANGE            /08060201/ [Concomitant]
     Indication: Insomnia
     Dosage: 25 G, TID
     Route: 048
     Dates: start: 20210728, end: 20210907
  31. ZOLPIDEM TARTRATE [Concomitant]
     Active Substance: ZOLPIDEM TARTRATE
     Indication: Multiple sclerosis
     Dosage: 2.5 MG, QD
     Route: 048
     Dates: end: 20210907

REACTIONS (1)
  - Neuromyelitis optica spectrum disorder [Unknown]

NARRATIVE: CASE EVENT DATE: 20210309
